FAERS Safety Report 24841281 (Version 1)
Quarter: 2025Q1

REPORT INFORMATION
  Report Type: Spontaneous
  Country: US (occurrence: None)
  Receive Date: 20250114
  Receipt Date: 20250114
  Transmission Date: 20250409
  Serious: Yes (Hospitalization)
  Sender: FDA-CTU
  Company Number: None

PATIENT
  Age: 73 Year
  Sex: Male
  Weight: 77 kg

DRUGS (2)
  1. PEMETREXED [Suspect]
     Active Substance: PEMETREXED
     Indication: Non-small cell lung cancer
     Route: 042
  2. CISPLATIN [Suspect]
     Active Substance: CISPLATIN
     Route: 042

REACTIONS (5)
  - Thrombocytopenia [None]
  - Rhinorrhoea [None]
  - Oropharyngeal pain [None]
  - Acute kidney injury [None]
  - Nephrolithiasis [None]

NARRATIVE: CASE EVENT DATE: 20240909
